FAERS Safety Report 9830076 (Version 2)
Quarter: 2014Q1

REPORT INFORMATION
  Report Type: Spontaneous
  Country: CZ (occurrence: CZ)
  Receive Date: 20140120
  Receipt Date: 20140120
  Transmission Date: 20141002
  Serious: Yes (Other)
  Sender: FDA-Public Use
  Company Number: CZ-009507513-2003-09-2394

PATIENT
  Age: 51 Year
  Sex: Female

DRUGS (2)
  1. PEG-INTRON [Suspect]
     Indication: CHRONIC HEPATITIS C
     Dosage: DOSE: 80 MCG QWK, DURATION: 4 MONTH(S)
     Route: 058
     Dates: start: 20030514, end: 20030913
  2. RIBAVIRIN [Suspect]
     Indication: CHRONIC HEPATITIS C
     Dosage: DOSE: 1000 MG QD, DURATION: 4 MONTH(S)
     Route: 048
     Dates: start: 20030514, end: 20030913

REACTIONS (2)
  - Alveolitis allergic [Unknown]
  - Bronchospasm [Unknown]
